FAERS Safety Report 6198928-8 (Version None)
Quarter: 2009Q2

REPORT INFORMATION
  Report Type: 
  Country: None (occurrence: None)
  Receive Date: 20090522
  Receipt Date: 20090512
  Transmission Date: 20091009
  Serious: Yes (Hospitalization)
  Sender: FDA-Public Use
  Company Number: JP-ELI_LILLY_AND_COMPANY-JP200904001227

PATIENT
  Sex: Female

DRUGS (3)
  1. HUMALOG [Suspect]
     Indication: DIABETES MELLITUS
     Dosage: 16 U, EACH MORNING
     Route: 058
     Dates: start: 20090301
  2. HUMALOG [Suspect]
     Dosage: 6 U, DAILY (1/D)
     Route: 058
     Dates: start: 20090301
  3. HUMALOG [Suspect]
     Dosage: 4 U, EACH EVENING
     Route: 058
     Dates: start: 20090301

REACTIONS (1)
  - DEPRESSED LEVEL OF CONSCIOUSNESS [None]
